FAERS Safety Report 7011778-5 (Version None)
Quarter: 2010Q3

REPORT INFORMATION
  Report Type: 
  Country: None (occurrence: None)
  Receive Date: 20100923
  Receipt Date: 20090615
  Transmission Date: 20110219
  Serious: No
  Sender: FDA-Public Use
  Company Number: US-WYE-H09771009

PATIENT
  Age: 82 Year
  Sex: Female

DRUGS (1)
  1. PREMARIN [Suspect]
     Indication: VULVOVAGINAL DRYNESS
     Route: 067
     Dates: start: 20090315, end: 20090524

REACTIONS (5)
  - APPLICATION SITE DISCOMFORT [None]
  - APPLICATION SITE PAIN [None]
  - APPLICATION SITE PRURITUS [None]
  - OEDEMA GENITAL [None]
  - VAGINAL SWELLING [None]
